FAERS Safety Report 13943429 (Version 1)
Quarter: 2017Q3

REPORT INFORMATION
  Report Type: Spontaneous
  Country: GB (occurrence: GB)
  Receive Date: 20170907
  Receipt Date: 20170907
  Transmission Date: 20171128
  Serious: Yes (Other)
  Sender: FDA-Public Use
  Company Number: GB-TEVA-802245ACC

PATIENT
  Age: 94 Year
  Sex: Female
  Weight: 60 kg

DRUGS (16)
  1. CO-DYDRAMOL [Concomitant]
     Active Substance: ACETAMINOPHEN\DIHYDROCODEINE
     Dosage: 4 DOSAGE FORMS DAILY;
     Dates: start: 20160301, end: 20170808
  2. HYLO-FORTE [Concomitant]
     Active Substance: HYALURONATE SODIUM
     Dosage: 6 GTT DAILY; 1 DROPS BOTH EYES.
     Route: 050
     Dates: start: 20170621
  3. MONOMIL XL [Concomitant]
     Active Substance: ISOSORBIDE MONONITRATE
     Dosage: .5 DOSAGE FORMS DAILY; HALF EACH MORNING.
     Dates: start: 20140423
  4. PROMAZINE [Concomitant]
     Active Substance: PROMAZINE
     Dosage: 75 MILLIGRAM DAILY; 25 MG AT 8 AM AND 2 PM AND 50 MG NOCTE  AS PER ...
     Dates: start: 20170804
  5. LANSOPRAZOLE. [Concomitant]
     Active Substance: LANSOPRAZOLE
     Dosage: .5 DOSAGE FORMS DAILY;
     Dates: start: 20160803
  6. NITROFURANTOIN. [Concomitant]
     Active Substance: NITROFURANTOIN
     Dosage: 2 DOSAGE FORMS DAILY;
     Dates: start: 20170627, end: 20170702
  7. NYSTAN [Concomitant]
     Active Substance: NYSTATIN
     Dosage: 4 ML DAILY;
     Dates: start: 20170807, end: 20170814
  8. SLOW SODIUM [Concomitant]
     Dosage: 6 DOSAGE FORMS DAILY;
     Dates: start: 20170804
  9. ACCRETE D3 [Concomitant]
     Dosage: 2 DOSAGE FORMS DAILY;
     Dates: start: 20160818
  10. ACIDEX [Concomitant]
     Active Substance: CALCIUM CARBONATE\SODIUM ALGINATE\SODIUM BICARBONATE
     Dosage: 45 ML DAILY; PEPPERMINT
     Dates: start: 20141113
  11. TRIMETHOPRIM. [Concomitant]
     Active Substance: TRIMETHOPRIM
     Dosage: 1 DOSAGE FORMS DAILY; AT NIGHT.
     Dates: start: 20170217
  12. CLOTRIMAZOLE. [Suspect]
     Active Substance: CLOTRIMAZOLE
     Dates: start: 20170810
  13. REFRESH CELLUVISC [Concomitant]
     Active Substance: CARBOXYMETHYLCELLULOSE SODIUM
     Dosage: APPLY TO EYES UP TO FOUR TIMES A DAY.
     Route: 050
     Dates: start: 20141212
  14. PARACETAMOL [Concomitant]
     Active Substance: ACETAMINOPHEN
     Dosage: UP TO FOUR TIMES A DAY.
     Dates: start: 20170627
  15. HYDROXOCOBALAMIN [Concomitant]
     Active Substance: HYDROXOCOBALAMIN
     Dosage: 1 INJECTION EVERY 3-4 MONTHS.
     Dates: start: 20161115
  16. LORAZEPAM. [Concomitant]
     Active Substance: LORAZEPAM
     Dosage: 2 MILLIGRAM DAILY; MAX 2 MG IN 24 HRS.
     Dates: start: 20170804

REACTIONS (2)
  - Angioedema [Unknown]
  - Hypersensitivity [Recovered/Resolved]

NARRATIVE: CASE EVENT DATE: 20170816
